FAERS Safety Report 15263554 (Version 1)
Quarter: 2018Q3

REPORT INFORMATION
  Report Type: Spontaneous
  Country: US (occurrence: US)
  Receive Date: 20180720
  Receipt Date: 20180720
  Transmission Date: 20181010
  Serious: Yes (Disabling)
  Sender: FDA-Public Use
  Company Number: None

PATIENT
  Age: 61 Year
  Sex: Female
  Weight: 60.75 kg

DRUGS (7)
  1. VALSARTAN 320MG [Suspect]
     Active Substance: VALSARTAN
     Indication: HYPERTENSION
     Dosage: ?          QUANTITY:1 TABLET(S);?
     Route: 048
     Dates: start: 20171003, end: 20180713
  2. ADVIL [Concomitant]
     Active Substance: IBUPROFEN
  3. CENTRUM SILVER WOMAN MULTIVITAMIN [Concomitant]
  4. DEPLIN [Concomitant]
     Active Substance: LEVOMEFOLATE CALCIUM
  5. TELMISARTAN. [Concomitant]
     Active Substance: TELMISARTAN
  6. FLUOXETINE [Concomitant]
     Active Substance: FLUOXETINE HYDROCHLORIDE
  7. NUVIGIL [Concomitant]
     Active Substance: ARMODAFINIL

REACTIONS (13)
  - Headache [None]
  - Recalled product [None]
  - Abdominal pain [None]
  - Lethargy [None]
  - Influenza like illness [None]
  - Asthenia [None]
  - Cough [None]
  - Insomnia [None]
  - Wheezing [None]
  - Disturbance in attention [None]
  - Gastric disorder [None]
  - Fatigue [None]
  - Feeling abnormal [None]

NARRATIVE: CASE EVENT DATE: 20171017
